FAERS Safety Report 6433943-8 (Version None)
Quarter: 2009Q4

REPORT INFORMATION
  Report Type: 
  Country: None (occurrence: None)
  Receive Date: 20091110
  Receipt Date: 20091028
  Transmission Date: 20100525
  Serious: No
  Sender: FDA-Public Use
  Company Number: US-BAYER-200934762NA

PATIENT
  Age: 54 Year
  Sex: Male
  Weight: 84 kg

DRUGS (3)
  1. ULTRAVIST 300 [Suspect]
     Indication: RENAL CYST
     Dosage: TOTAL DAILY DOSE: 95  ML  UNIT DOSE: 100 ML
     Route: 042
     Dates: start: 20090929, end: 20090929
  2. ULTRAVIST 300 [Suspect]
  3. ^HEART MEDICATION^ [Concomitant]

REACTIONS (9)
  - BLOOD PRESSURE DECREASED [None]
  - DIZZINESS [None]
  - HEART RATE DECREASED [None]
  - HYPERHIDROSIS [None]
  - LOCAL SWELLING [None]
  - NASAL CONGESTION [None]
  - PRURITUS [None]
  - SNEEZING [None]
  - SWELLING FACE [None]
